FAERS Safety Report 17144388 (Version 2)
Quarter: 2020Q3

REPORT INFORMATION
  Report Type: Spontaneous
  Country: US (occurrence: US)
  Receive Date: 20191212
  Receipt Date: 20200722
  Transmission Date: 20201102
  Serious: No
  Sender: FDA-Public Use
  Company Number: US-PFIZER INC-2019535729

PATIENT
  Age: 63 Year
  Sex: Female

DRUGS (1)
  1. METHOTREXATE SODIUM. [Suspect]
     Active Substance: METHOTREXATE SODIUM
     Dosage: UNK
     Dates: end: 201905

REACTIONS (2)
  - Treatment failure [Unknown]
  - Liver function test increased [Unknown]

NARRATIVE: CASE EVENT DATE: 2019
